FAERS Safety Report 15018657 (Version 1)
Quarter: 2018Q2

REPORT INFORMATION
  Report Type: Report from Study
  Country: BE (occurrence: BE)
  Receive Date: 20180616
  Receipt Date: 20180616
  Transmission Date: 20180711
  Serious: Yes (Death)
  Sender: FDA-Public Use
  Company Number: BE-ROCHE-2140809

PATIENT
  Sex: Female

DRUGS (1)
  1. CAPECITABINE. [Suspect]
     Active Substance: CAPECITABINE
     Indication: BREAST CANCER
     Route: 048

REACTIONS (1)
  - Septic shock [Fatal]
